FAERS Safety Report 13694756 (Version 4)
Quarter: 2017Q4

REPORT INFORMATION
  Report Type: Spontaneous
  Country: JP (occurrence: JP)
  Receive Date: 20170627
  Receipt Date: 20171113
  Transmission Date: 20180320
  Serious: Yes (Death)
  Sender: FDA-Public Use
  Company Number: JP-DSJP-DSJ-2017-117431

PATIENT
  Age: 72 Year
  Sex: Male
  Weight: 47 kg

DRUGS (8)
  1. LIXIANA TABLETS [Suspect]
     Active Substance: EDOXABAN TOSYLATE
     Indication: HEPATIC ENCEPHALOPATHY
     Dosage: 60 MG, TID (TOTAL 8 TIMES)
     Route: 048
     Dates: start: 20170428, end: 20170430
  2. TAKECAB [Concomitant]
     Active Substance: VONOPRAZAN FUMURATE
     Dosage: 10 MG, QD
     Route: 048
     Dates: end: 20170430
  3. MARZULENE S [Concomitant]
     Active Substance: GLUTAMINE\SODIUM GUALENATE
     Dosage: 2G/DAY, TID, AFTER EACH MEAL
     Route: 048
     Dates: end: 20170430
  4. AMINOLEBAN EN [Concomitant]
     Active Substance: UNSPECIFIED INGREDIENT
     Dosage: 50 G, QD
     Route: 048
     Dates: end: 20170430
  5. LIXIANA TABLETS [Suspect]
     Active Substance: EDOXABAN TOSYLATE
     Indication: DRUG DISPENSING ERROR
  6. BIO-THREE [Concomitant]
     Active Substance: HERBALS
     Dosage: 1 G, TID, AFTER EACH MEAL
     Route: 048
     Dates: end: 20170430
  7. URSO [Concomitant]
     Active Substance: URSODIOL
     Dosage: 2 DF, TID, AFTER EACH MEAL
     Route: 048
     Dates: end: 20170430
  8. NESINA [Concomitant]
     Active Substance: ALOGLIPTIN BENZOATE
     Dosage: 25 MG, QD
     Route: 048
     Dates: end: 20170430

REACTIONS (3)
  - Drug dispensing error [Fatal]
  - Overdose [Fatal]
  - Gastrointestinal haemorrhage [Fatal]

NARRATIVE: CASE EVENT DATE: 20170428
